FAERS Safety Report 4837284-1 (Version None)
Quarter: 2005Q4

REPORT INFORMATION
  Report Type: 
  Country: None (occurrence: None)
  Receive Date: 20051122
  Receipt Date: 20051109
  Transmission Date: 20060501
  Serious: Yes (Hospitalization)
  Sender: FDA-Public Use
  Company Number: HQWYE486210NOV05

PATIENT
  Age: 58 Year
  Sex: Male

DRUGS (4)
  1. ARTANE [Suspect]
     Indication: PARKINSONISM
     Dosage: 6 MG 1X PER 1 DAY
     Route: 048
     Dates: end: 20040413
  2. AMANTADINE HCL [Suspect]
     Indication: PARKINSONISM
     Dosage: 100 MG 1X PER 1 DAY
     Dates: start: 20030301, end: 20040413
  3. LEVODOPA BENSERAZIDE HYDROCHLO (BENSERAZIDE HYDROCHLORIDE/LEVODOPA) [Suspect]
     Indication: PARKINSONISM
     Dosage: 300 MG 1X PER 1 DAY
     Dates: end: 20040413
  4. LEVODOPA BENSERAZIDE HYDROCHLO (BENSERAZIDE HYDROCHLORIDE/LEVODOPA) [Suspect]
     Indication: PARKINSONISM
     Dosage: 300 MG 1X PER 1 DAY
     Dates: start: 20040101

REACTIONS (4)
  - CONDITION AGGRAVATED [None]
  - INCONTINENCE [None]
  - NEUROLEPTIC MALIGNANT SYNDROME [None]
  - PARKINSONISM [None]
